FAERS Safety Report 9728026 (Version 2)
Quarter: 2013Q4

REPORT INFORMATION
  Report Type: Spontaneous
  Country: GB (occurrence: None)
  Receive Date: 20131127
  Receipt Date: 20131205
  Transmission Date: 20140711
  Serious: Yes (Hospitalization, Other)
  Sender: FDA-Public Use
  Company Number: 2029886

PATIENT
  Sex: 0

DRUGS (6)
  1. CALCIUM FOLINATE [Suspect]
     Indication: COLORECTAL CANCER METASTATIC
     Dosage: INTRAVENOUS (NOT OTHERWISE SPECIFIED)?
     Route: 042
  2. IRINOTECAN HYDROCHLORIDE [Suspect]
     Indication: COLORECTAL CANCER METASTATIC
  3. OXALIPLATIN [Suspect]
     Indication: COLORECTAL CANCER METASTATIC
  4. FLUOROURACIL [Suspect]
     Indication: COLORECTAL CANCER METASTATIC
     Route: 042
  5. BEVACIZUMAB [Concomitant]
     Indication: COLORECTAL CANCER METASTATIC
  6. CAPECITABINE [Concomitant]
     Indication: COLORECTAL CANCER METASTATIC

REACTIONS (3)
  - Blood culture positive [None]
  - Bacterial infection [None]
  - Device related infection [None]
